FAERS Safety Report 5689846-X (Version None)
Quarter: 2008Q2

REPORT INFORMATION
  Report Type: 
  Country: None (occurrence: None)
  Receive Date: 20080401
  Receipt Date: 20080320
  Transmission Date: 20081010
  Serious: Yes (Death)
  Sender: FDA-Public Use
  Company Number: GB-RANBAXY-2008RR-13933

PATIENT

DRUGS (1)
  1. LISINOPRIL 2.5MG TABLETS [Suspect]
     Dosage: 20 MG, UNK

REACTIONS (2)
  - COMPLETED SUICIDE [None]
  - OVERDOSE [None]
